FAERS Safety Report 21987174 (Version 1)
Quarter: 2023Q1

REPORT INFORMATION
  Report Type: Spontaneous
  Country: FR (occurrence: FR)
  Receive Date: 20230213
  Receipt Date: 20230213
  Transmission Date: 20230418
  Serious: Yes (Other)
  Sender: FDA-Public Use
  Company Number: FR-ALKEM LABORATORIES LIMITED-FR-ALKEM-2023-01172

PATIENT
  Age: 27 Year
  Sex: Male

DRUGS (6)
  1. MYCOPHENOLATE MOFETIL [Suspect]
     Active Substance: MYCOPHENOLATE MOFETIL
     Indication: Immunosuppressant drug therapy
     Dosage: 2 G/DAY
     Route: 065
  2. TACROLIMUS [Suspect]
     Active Substance: TACROLIMUS
     Indication: Immunosuppressant drug therapy
     Dosage: UNK, (TARGET TROUGH LEVELS 10-15 MICROG/L
     Route: 048
  3. TACROLIMUS [Suspect]
     Active Substance: TACROLIMUS
     Dosage: UNK, (REMISSION WAS OBTAINED AFTER TAPERING OF TACROLIMUS)
     Route: 065
  4. TACROLIMUS [Suspect]
     Active Substance: TACROLIMUS
     Dosage: UNK, RESUMED AT LOWER DOSES 5 MICROG/L)
     Route: 065
  5. TACROLIMUS [Suspect]
     Active Substance: TACROLIMUS
     Dosage: UNK, PROGRESSIVELY TAPERED
     Route: 065
     Dates: end: 201210
  6. PREDNISONE [Suspect]
     Active Substance: PREDNISONE
     Indication: Immunosuppressant drug therapy
     Dosage: UNK
     Route: 065

REACTIONS (8)
  - Smooth muscle cell neoplasm [Unknown]
  - Pneumocystis jirovecii pneumonia [Unknown]
  - Transplant rejection [Not Recovered/Not Resolved]
  - B-cell lymphoma [Recovered/Resolved]
  - Epstein-Barr viraemia [Recovered/Resolved]
  - Herpes simplex [Unknown]
  - Herpes zoster [Unknown]
  - Oral candidiasis [Unknown]

NARRATIVE: CASE EVENT DATE: 20100401
